FAERS Safety Report 6538801-6 (Version None)
Quarter: 2010Q1

REPORT INFORMATION
  Report Type: 
  Country: None (occurrence: None)
  Receive Date: 20100114
  Receipt Date: 20100114
  Transmission Date: 20100710
  Serious: Yes (Life-Threatening, Disabling, Other)
  Sender: FDA-Public Use
  Company Number: None

PATIENT
  Sex: Female
  Weight: 63.5036 kg

DRUGS (2)
  1. AMPHETAMINES [Suspect]
     Indication: ANTIDEPRESSANT THERAPY
     Dosage: 10 MG 7/8 DAY PO 5-6 DAYS
     Route: 048
     Dates: start: 20091226, end: 20100101
  2. ADDERALL GENERIC 10 MG TABLET TEVA PHARMACEUTICALS [Suspect]

REACTIONS (7)
  - DEPRESSION [None]
  - DRUG INEFFECTIVE [None]
  - HEAD TITUBATION [None]
  - HYPERPHAGIA [None]
  - INCREASED APPETITE [None]
  - PRODUCT SUBSTITUTION ISSUE [None]
  - SOMNOLENCE [None]
